FAERS Safety Report 10061609 (Version 1)
Quarter: 2014Q2

REPORT INFORMATION
  Report Type: Spontaneous
  Country: ES (occurrence: ES)
  Receive Date: 20140407
  Receipt Date: 20140407
  Transmission Date: 20141212
  Serious: Yes (Other)
  Sender: FDA-Public Use
  Company Number: ES-VERTEX PHARMACEUTICALS INC-2014-001807

PATIENT
  Age: 60 Year
  Sex: Male

DRUGS (5)
  1. INCIVO [Suspect]
     Indication: CHRONIC HEPATITIS C
     Dosage: 2250 MG, QD
     Route: 065
     Dates: start: 20130830, end: 20131113
  2. RIBAVIRIN [Suspect]
     Indication: CHRONIC HEPATITIS C
     Dosage: 1000 MG, QD
     Route: 065
     Dates: start: 20130916, end: 20131122
  3. RIBAVIRIN [Suspect]
     Dosage: 1200 MG, QD
     Route: 065
     Dates: start: 20130830, end: 20130916
  4. RIBAVIRIN [Suspect]
     Dosage: 800 MG, QD
     Route: 065
     Dates: start: 20131122
  5. PEG INTRON [Concomitant]
     Indication: CHRONIC HEPATITIS C
     Dosage: 100 ?G, QW
     Dates: start: 20130430

REACTIONS (2)
  - Rash [Recovered/Resolved]
  - Off label use [Recovered/Resolved]
